FAERS Safety Report 7969707-3 (Version None)
Quarter: 2011Q4

REPORT INFORMATION
  Report Type: 
  Country: None (occurrence: None)
  Receive Date: 20111212
  Receipt Date: 20111128
  Transmission Date: 20120403
  Serious: Yes (Other)
  Sender: FDA-Public Use
  Company Number: US-JNJFOC-20110906264

PATIENT
  Sex: Female
  Weight: 131.54 kg

DRUGS (15)
  1. IBUPROFEN [Concomitant]
     Route: 048
  2. LEXAPRO [Concomitant]
     Route: 048
  3. PRILOSEC [Concomitant]
     Route: 048
  4. SYNTHROID [Concomitant]
     Indication: HYPOTHYROIDISM
  5. ASPIRIN [Concomitant]
     Route: 048
  6. STELARA [Suspect]
     Indication: PSORIASIS
     Route: 058
     Dates: start: 20110801
  7. CLOBETASOL PROPIONATE [Concomitant]
  8. LIPITOR [Concomitant]
     Indication: HYPERLIPIDAEMIA
     Route: 048
  9. MICRONOR [Suspect]
     Indication: CONTRACEPTION
     Route: 048
     Dates: start: 20090101
  10. MAGNESIUM SULFATE [Concomitant]
     Route: 048
  11. MOMETASONE FUROATE [Concomitant]
  12. ALTACE [Concomitant]
     Indication: HYPERTENSION
     Route: 048
  13. CALCIUM AND VITAMIN D [Concomitant]
     Dosage: 500/125 MG
     Route: 048
  14. HYDROCORTISONE [Concomitant]
  15. HUMIRA [Concomitant]

REACTIONS (6)
  - PSORIATIC ARTHROPATHY [None]
  - HEADACHE [None]
  - ANXIETY [None]
  - ARTHRITIS [None]
  - FATIGUE [None]
  - HYPERLIPIDAEMIA [None]
